FAERS Safety Report 5283669-1 (Version None)
Quarter: 2007Q1

REPORT INFORMATION
  Report Type: 
  Country: None (occurrence: None)
  Receive Date: 20061226
  Receipt Date: 20051103
  Transmission Date: 20070707
  Serious: Yes (Other)
  Sender: FDA-Public Use
  Company Number: WAES 0511USA00564

PATIENT
  Age: 51 Year
  Sex: Male
  Weight: 97.977 kg

DRUGS (8)
  1. ZETIA [Suspect]
     Indication: HYPERLIPIDAEMIA
     Dosage: 10MG/DAILY;PO
     Route: 048
     Dates: start: 20040701, end: 20051031
  2. ADDERALL TABLETS [Concomitant]
  3. ECOTRIN [Concomitant]
  4. EFFEXOR XR [Concomitant]
  5. NEXIUM [Concomitant]
  6. SEROQUEL [Concomitant]
  7. TOPROL-XL [Concomitant]
  8. TRICOR [Concomitant]

REACTIONS (2)
  - ANXIETY [None]
  - RHABDOMYOLYSIS [None]
